FAERS Safety Report 15656901 (Version 1)
Quarter: 2018Q4

REPORT INFORMATION
  Report Type: Spontaneous
  Country: FR (occurrence: FR)
  Receive Date: 20181126
  Receipt Date: 20181126
  Transmission Date: 20190205
  Serious: Yes (Hospitalization)
  Sender: FDA-Public Use
  Company Number: FR-SA-2018SA316768

PATIENT
  Age: 86 Year
  Sex: Female

DRUGS (5)
  1. HEPARIN SODIUM. [Suspect]
     Active Substance: HEPARIN SODIUM
     Indication: ANTICOAGULANT THERAPY
     Dosage: UNK
     Route: 041
     Dates: start: 20181008, end: 20181008
  2. MIDAZOLAM [Suspect]
     Active Substance: MIDAZOLAM HYDROCHLORIDE
     Indication: PREMEDICATION
     Dosage: UNK
     Route: 041
     Dates: start: 20181008, end: 20181008
  3. DIPYRIDAMOLE. [Suspect]
     Active Substance: DIPYRIDAMOLE
     Dosage: NOT SPECIFIED
     Route: 041
     Dates: start: 20181008, end: 20181008
  4. IOVERSOL [Suspect]
     Active Substance: IOVERSOL
     Dosage: 200 ML, QD
     Route: 041
     Dates: start: 20181008, end: 20181008
  5. LIDOCAINE. [Suspect]
     Active Substance: LIDOCAINE
     Indication: INFILTRATION ANAESTHESIA
     Dosage: UNK
     Route: 014
     Dates: start: 20181008, end: 20181008

REACTIONS (1)
  - Toxic skin eruption [Recovering/Resolving]

NARRATIVE: CASE EVENT DATE: 20181015
